FAERS Safety Report 17446000 (Version 1)
Quarter: 2020Q1

REPORT INFORMATION
  Report Type: Spontaneous
  Country: JP (occurrence: JP)
  Receive Date: 20200221
  Receipt Date: 20200221
  Transmission Date: 20200409
  Serious: Yes (Hospitalization)
  Sender: FDA-Public Use
  Company Number: JP-GUERBET-JP-20200021

PATIENT
  Age: 50 Year
  Sex: Female

DRUGS (2)
  1. MAGNESCOPE INTRAVENOUS INJECTION 38% SYRINGE 15ML [Suspect]
     Active Substance: GADOTERATE MEGLUMINE
     Indication: MAGNETIC RESONANCE IMAGING
     Route: 042
     Dates: start: 20200208, end: 20200208
  2. SALINE [Concomitant]
     Active Substance: SODIUM CHLORIDE
     Indication: MAGNETIC RESONANCE IMAGING
     Dosage: FOR 2 MINUTES
     Route: 042
     Dates: start: 20200208, end: 20200208

REACTIONS (6)
  - Eyelid oedema [Recovering/Resolving]
  - Oropharyngeal discomfort [Recovering/Resolving]
  - Dysphonia [Recovering/Resolving]
  - Ocular hyperaemia [Recovering/Resolving]
  - Hypersensitivity [Recovering/Resolving]
  - Lacrimation increased [Recovering/Resolving]

NARRATIVE: CASE EVENT DATE: 20200208
